FAERS Safety Report 25477697 (Version 1)
Quarter: 2025Q2

REPORT INFORMATION
  Report Type: Spontaneous
  Country: ES (occurrence: ES)
  Receive Date: 20250625
  Receipt Date: 20250625
  Transmission Date: 20250717
  Serious: Yes (Life-Threatening, Hospitalization, Other)
  Sender: AUROBINDO
  Company Number: ES-AEMPS-1668909

PATIENT
  Age: 15 Year
  Sex: Female
  Weight: 62 kg

DRUGS (2)
  1. ACETAMINOPHEN [Interacting]
     Active Substance: ACETAMINOPHEN
     Indication: Product used for unknown indication
     Route: 048
     Dates: start: 20241006, end: 20241006
  2. METAMIZOL [Interacting]
     Active Substance: METAMIZOLE SODIUM
     Indication: Suicidal ideation
     Route: 048
     Dates: start: 20241006, end: 20241006

REACTIONS (2)
  - Acute hepatic failure [Recovered/Resolved]
  - Intentional overdose [Recovered/Resolved]

NARRATIVE: CASE EVENT DATE: 20241007
